FAERS Safety Report 5527708-9 (Version None)
Quarter: 2007Q4

REPORT INFORMATION
  Report Type: 
  Country: None (occurrence: None)
  Receive Date: 20071121
  Receipt Date: 20071115
  Transmission Date: 20080405
  Serious: Yes (Other)
  Sender: FDA-Public Use
  Company Number: 2007SP003221

PATIENT
  Age: 76 Year
  Sex: Female
  Weight: 45 kg

DRUGS (14)
  1. TEMODAL [Suspect]
     Indication: GLIOBLASTOMA MULTIFORME
     Dosage: 75 MG/M2;QD;PO
     Route: 048
     Dates: start: 20070115, end: 20070215
  2. ZONISAMIDE [Suspect]
     Indication: DRUG USE FOR UNKNOWN INDICATION
     Dosage: PO
     Route: 048
     Dates: start: 20070109, end: 20070220
  3. PRIMEPERAN (METOCLOPRAMIDE) [Suspect]
     Indication: DECREASED APPETITE
     Dosage: PO
     Route: 048
     Dates: start: 20070120, end: 20070220
  4. PRIMEPERAN (METOCLOPRAMIDE) [Suspect]
     Indication: NAUSEA
     Dosage: PO
     Route: 048
     Dates: start: 20070120, end: 20070220
  5. DOGMATYL (SULPIRIDE) [Suspect]
     Indication: DECREASED APPETITE
     Dosage: PO
     Route: 048
     Dates: start: 20070203, end: 20070215
  6. DOGMATYL (SULPIRIDE) [Suspect]
     Indication: NAUSEA
     Dosage: PO
     Route: 048
     Dates: start: 20070203, end: 20070215
  7. PREDONINE [Concomitant]
  8. BLOPRESS [Concomitant]
  9. BERIZYM [Concomitant]
  10. MARZULENE-S [Concomitant]
  11. FERROMIA [Concomitant]
  12. GLYSENNID [Concomitant]
  13. CRAVIT [Concomitant]
  14. DICLOD [Concomitant]

REACTIONS (4)
  - DECREASED APPETITE [None]
  - INTERSTITIAL LUNG DISEASE [None]
  - LYMPHOCYTE COUNT DECREASED [None]
  - NAUSEA [None]
